FAERS Safety Report 5503902-8 (Version None)
Quarter: 2007Q4

REPORT INFORMATION
  Report Type: 
  Country: None (occurrence: None)
  Receive Date: 20071101
  Receipt Date: 20071023
  Transmission Date: 20080405
  Serious: Yes (Hospitalization, Disabling)
  Sender: FDA-Public Use
  Company Number: US-JNJFOC-20070401618

PATIENT
  Sex: Female
  Weight: 72.58 kg

DRUGS (3)
  1. ORTHO EVRA [Suspect]
     Indication: CONTRACEPTION
     Route: 062
  2. VERAPAMIL [Concomitant]
     Indication: HEADACHE
  3. DEMEROL [Concomitant]

REACTIONS (1)
  - INTRACRANIAL VENOUS SINUS THROMBOSIS [None]
